FAERS Safety Report 22923307 (Version 2)
Quarter: 2025Q2

REPORT INFORMATION
  Report Type: Report from Study
  Country: US (occurrence: US)
  Receive Date: 20230908
  Receipt Date: 20250605
  Transmission Date: 20250716
  Serious: Yes (Death, Other)
  Sender: MERCK SHARP & DOHME LLC
  Company Number: US-009507513-2309USA002155

PATIENT
  Sex: Female

DRUGS (2)
  1. KEYTRUDA [Suspect]
     Active Substance: PEMBROLIZUMAB
     Indication: Lung carcinoma cell type unspecified stage IV
     Dosage: DOSE DESCRIPTION : UNK UNK, EVERY 6 WEEKS; STRENGTH: 100 MG
     Route: 042
     Dates: start: 2023
  2. KEYTRUDA [Suspect]
     Active Substance: PEMBROLIZUMAB
     Indication: Lung carcinoma cell type unspecified stage IV
     Dosage: DOSE DESCRIPTION : EVERY 3 WEEKS INITIALLY; STRENGTH: 100 MG
     Route: 042
     Dates: start: 202303

REACTIONS (6)
  - Death [Fatal]
  - Seizure [Unknown]
  - Decreased appetite [Unknown]
  - Fatigue [Unknown]
  - Inflammation [Unknown]
  - Urinary tract infection [Unknown]

NARRATIVE: CASE EVENT DATE: 20230101
